FAERS Safety Report 5204095-7 (Version None)
Quarter: 2007Q1

REPORT INFORMATION
  Report Type: 
  Country: None (occurrence: None)
  Receive Date: 20070110
  Receipt Date: 20051117
  Transmission Date: 20070707
  Serious: No
  Sender: FDA-Public Use
  Company Number: US-BRISTOL-MYERS SQUIBB COMPANY-13184353

PATIENT
  Age: 44 Year
  Sex: Female
  Weight: 66 kg

DRUGS (3)
  1. ABILIFY [Suspect]
     Indication: DEPRESSION
     Dosage: INTERRUPTED BY PATIENT FROM 11-NOV-2005 TO 16-NOV-2005
     Route: 048
  2. ABILIFY [Suspect]
     Indication: ANXIETY
     Dosage: INTERRUPTED BY PATIENT FROM 11-NOV-2005 TO 16-NOV-2005
     Route: 048
  3. WELLBUTRIN [Concomitant]

REACTIONS (3)
  - FATIGUE [None]
  - INSOMNIA [None]
  - NAUSEA [None]
